FAERS Safety Report 24042727 (Version 1)
Quarter: 2024Q3

REPORT INFORMATION
  Report Type: Spontaneous
  Country: US (occurrence: US)
  Receive Date: 20240702
  Receipt Date: 20240702
  Transmission Date: 20241017
  Serious: No
  Sender: INTRA-CELLULAR THERAPIES
  Company Number: US-INTRA-CELLULAR THERAPIES, INC.-2024ICT00664

PATIENT
  Age: 60 Year
  Sex: Female

DRUGS (6)
  1. CAPLYTA [Suspect]
     Active Substance: LUMATEPERONE
     Indication: Bipolar disorder
     Dosage: 42 MG, 1X/DAY AT NIGHT WITH FOOD
  2. LAMOTRIGINE [Concomitant]
     Active Substance: LAMOTRIGINE
  3. LITHIUM [Concomitant]
     Active Substance: LITHIUM
  4. ZOLOFT [Concomitant]
     Active Substance: SERTRALINE HYDROCHLORIDE
  5. STEROID #1 [Concomitant]
  6. STEROID #2 [Concomitant]

REACTIONS (3)
  - Dizziness [Unknown]
  - Nausea [Unknown]
  - Dry mouth [Unknown]
